FAERS Safety Report 9708796 (Version 2)
Quarter: 2013Q4

REPORT INFORMATION
  Report Type: Spontaneous
  Country: US (occurrence: US)
  Receive Date: 20131125
  Receipt Date: 20131125
  Transmission Date: 20140711
  Serious: Yes (Other)
  Sender: FDA-Public Use
  Company Number: US-PFIZER INC-2011066993

PATIENT
  Age: 52 Year
  Sex: Male
  Weight: 90.7 kg

DRUGS (2)
  1. LYRICA [Suspect]
     Indication: NEUROPATHY PERIPHERAL
     Dosage: 150 MG, AS NEEDED
     Route: 048
  2. MELOXICAM [Suspect]
     Indication: NEUROPATHY PERIPHERAL
     Dosage: 15 MG, DAILY

REACTIONS (1)
  - Diabetes mellitus [Unknown]
